FAERS Safety Report 5535845-8 (Version None)
Quarter: 2007Q4

REPORT INFORMATION
  Report Type: 
  Country: None (occurrence: None)
  Receive Date: 20071206
  Receipt Date: 20071128
  Transmission Date: 20080405
  Serious: Yes (Death, Hospitalization, Other)
  Sender: FDA-Public Use
  Company Number: US-JNJFOC-20071110825

PATIENT
  Sex: Female

DRUGS (8)
  1. DOXIL [Suspect]
     Route: 048
  2. DOXIL [Suspect]
     Indication: MULTIPLE MYELOMA
     Route: 048
  3. DEXAMETHASONE TAB [Suspect]
     Indication: MULTIPLE MYELOMA
     Route: 065
  4. REVLIMID [Suspect]
     Indication: MULTIPLE MYELOMA
     Route: 048
  5. AMIODARONE HCL [Concomitant]
     Indication: ARRHYTHMIA
     Route: 065
  6. MAGNESIUM SULFATE [Concomitant]
     Indication: RENAL FAILURE
     Route: 065
  7. ALLOPURINOL [Concomitant]
     Indication: RENAL FAILURE
     Route: 065
  8. EPOGEN [Concomitant]
     Indication: ANAEMIA
     Route: 065

REACTIONS (7)
  - ATRIAL FIBRILLATION [None]
  - CHILLS [None]
  - HYPERCALCAEMIA [None]
  - MULTIPLE MYELOMA [None]
  - PANCYTOPENIA [None]
  - PYREXIA [None]
  - RENAL FAILURE [None]
